FAERS Safety Report 8745712 (Version 2)
Quarter: 2013Q1

REPORT INFORMATION
  Report Type: Spontaneous
  Country: SE (occurrence: SE)
  Receive Date: 20120827
  Receipt Date: 20130214
  Transmission Date: 20140127
  Serious: Yes (Other)
  Sender: FDA-Public Use
  Company Number: SE-BRISTOL-MYERS SQUIBB COMPANY-16859050

PATIENT
  Age: 76 Year
  Sex: Female

DRUGS (7)
  1. MYCOSTATIN [Suspect]
     Dates: start: 20120314, end: 20120316
  2. AMOXICILLIN [Suspect]
     Dates: start: 201203, end: 201203
  3. FLUCONAZOLE [Suspect]
     Dates: start: 20120312, end: 20120314
  4. OMEPRAZOLE [Concomitant]
  5. SOBRIL [Concomitant]
     Dosage: TABLET
  6. CITODON [Concomitant]
     Dosage: TABLET
  7. IMOVANE [Concomitant]
     Dosage: TABLET

REACTIONS (4)
  - Pruritus [Unknown]
  - Fungal infection [Not Recovered/Not Resolved]
  - Urticaria [Unknown]
  - Rash erythematous [Unknown]
